FAERS Safety Report 7215379-5 (Version None)
Quarter: 2011Q1

REPORT INFORMATION
  Report Type: 
  Country: None (occurrence: None)
  Receive Date: 20110107
  Receipt Date: 20110104
  Transmission Date: 20110831
  Serious: Yes (Other)
  Sender: FDA-Public Use
  Company Number: US-PFIZER INC-2011001876

PATIENT
  Sex: Female

DRUGS (2)
  1. DETROL LA [Suspect]
     Dosage: 2 MG, UNK
     Route: 048
  2. TOVIAZ [Suspect]
     Dosage: UNK
     Route: 048

REACTIONS (3)
  - GASTRIC ULCER [None]
  - CHEST PAIN [None]
  - ULCER HAEMORRHAGE [None]
